FAERS Safety Report 10378263 (Version 3)
Quarter: 2014Q4

REPORT INFORMATION
  Report Type: Spontaneous
  Country: US (occurrence: US)
  Receive Date: 20140812
  Receipt Date: 20141103
  Transmission Date: 20150528
  Serious: No
  Sender: FDA-Public Use
  Company Number: US-PFIZER INC-2014221766

PATIENT
  Age: 73 Year
  Sex: Female
  Weight: 95.69 kg

DRUGS (4)
  1. TIKOSYN [Suspect]
     Active Substance: DOFETILIDE
     Indication: ATRIAL FIBRILLATION
     Dosage: 500 UG, 2X/DAY
     Route: 048
     Dates: start: 201306
  2. POTASSIUM [Concomitant]
     Active Substance: POTASSIUM
     Dosage: 10 MEQ, DAILY
  3. WARFARIN [Concomitant]
     Active Substance: WARFARIN
     Dosage: 5 MG, (DAILY FOR FIVE DAYS) EXCEPT MONDAY AND FRIDAY
  4. MECLIZINE [Concomitant]
     Active Substance: MECLIZINE\MECLIZINE HYDROCHLORIDE
     Indication: MENIERE^S DISEASE
     Dosage: 12.5 MG, 2X/DAY

REACTIONS (4)
  - Fungal infection [Recovering/Resolving]
  - Erythema [Recovering/Resolving]
  - Rash [Not Recovered/Not Resolved]
  - Pruritus [Not Recovered/Not Resolved]

NARRATIVE: CASE EVENT DATE: 201306
